FAERS Safety Report 13500162 (Version 1)
Quarter: 2017Q2

REPORT INFORMATION
  Report Type: Spontaneous
  Country: US (occurrence: US)
  Receive Date: 20170501
  Receipt Date: 20170501
  Transmission Date: 20170830
  Serious: No
  Sender: FDA-Public Use
  Company Number: US-SHIRE-US201709319

PATIENT
  Age: 81 Year
  Sex: Female

DRUGS (3)
  1. REFRESH LIQUIGEL [Concomitant]
     Active Substance: CARBOXYMETHYLCELLULOSE SODIUM
     Indication: PRODUCT USED FOR UNKNOWN INDICATION
     Dosage: UNK, OTHER (EVERY 2 HOURS)
     Route: 065
  2. XIIDRA [Suspect]
     Active Substance: LIFITEGRAST
     Dosage: 1 GTT, OTHER
     Route: 047
     Dates: start: 20170423
  3. XIIDRA [Suspect]
     Active Substance: LIFITEGRAST
     Indication: DRY EYE
     Dosage: 1 GTT (IN EACH EYE), 2X/DAY:BID
     Route: 047
     Dates: start: 2017, end: 2017

REACTIONS (4)
  - Instillation site reaction [Recovered/Resolved]
  - Wrong technique in product usage process [Unknown]
  - Instillation site discomfort [Unknown]
  - Instillation site lacrimation [Unknown]

NARRATIVE: CASE EVENT DATE: 2017
